FAERS Safety Report 4318374-9 (Version None)
Quarter: 2004Q1

REPORT INFORMATION
  Report Type: 
  Country: None (occurrence: None)
  Receive Date: 20040315
  Receipt Date: 20040302
  Transmission Date: 20041129
  Serious: Yes (Hospitalization)
  Sender: FDA-Public Use
  Company Number: FR-JNJFOC-20040300871

PATIENT
  Age: 36 Year
  Sex: Female

DRUGS (6)
  1. REMICADE [Suspect]
     Indication: CROHN'S DISEASE
     Dosage: 230 MG, INTRAVENOUS
     Route: 042
     Dates: start: 20030418, end: 20030814
  2. PENTASA [Concomitant]
  3. ACETAMINOPHEN [Concomitant]
  4. IMODIUM [Concomitant]
  5. AZATHIOPRINE [Concomitant]
  6. PREDNISOLONE [Concomitant]

REACTIONS (11)
  - ANTINUCLEAR ANTIBODY POSITIVE [None]
  - ARTHRALGIA [None]
  - DNA ANTIBODY POSITIVE [None]
  - DRUG HYPERSENSITIVITY [None]
  - DRUG INEFFECTIVE [None]
  - ECCHYMOSIS [None]
  - FOLLICULITIS [None]
  - JOINT SWELLING [None]
  - MIDDLE INSOMNIA [None]
  - MUSCULOSKELETAL STIFFNESS [None]
  - SKIN LESION [None]
